FAERS Safety Report 6985504-X (Version None)
Quarter: 2010Q3

REPORT INFORMATION
  Report Type: 
  Country: None (occurrence: None)
  Receive Date: 20100915
  Receipt Date: 20100913
  Transmission Date: 20110219
  Serious: Yes (Hospitalization)
  Sender: FDA-Public Use
  Company Number: B0674300A

PATIENT
  Sex: Female

DRUGS (4)
  1. AUGMENTIN '125' [Suspect]
     Indication: SINUSITIS
     Dosage: 1G THREE TIMES PER DAY
     Route: 048
     Dates: start: 20100505, end: 20100507
  2. RHINOTROPHYL [Concomitant]
     Indication: SINUSITIS
     Route: 045
     Dates: start: 20100505, end: 20100507
  3. MUCOMYST [Concomitant]
     Indication: SINUSITIS
     Route: 048
     Dates: start: 20100505, end: 20100507
  4. EFFERALGAN [Concomitant]
     Indication: SINUSITIS
     Route: 048
     Dates: start: 20100505, end: 20100507

REACTIONS (9)
  - BALANCE DISORDER [None]
  - COOMBS TEST POSITIVE [None]
  - HAEMOLYTIC ANAEMIA [None]
  - HEADACHE [None]
  - HYPERTHERMIA [None]
  - NAUSEA [None]
  - NECK PAIN [None]
  - PALLOR [None]
  - TINNITUS [None]
